FAERS Safety Report 24331552 (Version 1)
Quarter: 2024Q3

REPORT INFORMATION
  Report Type: Report from Study
  Country: IN (occurrence: IN)
  Receive Date: 20240918
  Receipt Date: 20240918
  Transmission Date: 20241016
  Serious: Yes (Hospitalization)
  Sender: ROCHE
  Company Number: IN-ROCHE-10000081881

PATIENT
  Age: 43 Year
  Sex: Female
  Weight: 73 kg

DRUGS (1)
  1. PHESGO [Suspect]
     Active Substance: HYALURONIDASE-ZZXF\PERTUZUMAB\TRASTUZUMAB
     Indication: Invasive ductal breast carcinoma
     Route: 058
     Dates: start: 20240416

REACTIONS (3)
  - Mastectomy [Unknown]
  - Axillary lymphadenectomy [Unknown]
  - Lymphovenous bypass [Unknown]

NARRATIVE: CASE EVENT DATE: 20240827
